FAERS Safety Report 6893206-3 (Version None)
Quarter: 2010Q3

REPORT INFORMATION
  Report Type: 
  Country: None (occurrence: None)
  Receive Date: 20100731
  Receipt Date: 20090702
  Transmission Date: 20110219
  Serious: No
  Sender: FDA-Public Use
  Company Number: US-PFIZER INC-2009221554

PATIENT
  Sex: Male
  Weight: 79.4 kg

DRUGS (8)
  1. GABAPENTIN [Suspect]
     Dosage: 300 MG, 1X/DAY
     Dates: start: 20090501
  2. PACERONE [Concomitant]
     Dosage: UNK
  3. ATENOLOL [Concomitant]
     Dosage: UNK
  4. SULFUR [Concomitant]
     Dosage: UNK
  5. FUROSEMIDE [Concomitant]
     Dosage: UNK
  6. FLUOXETINE [Concomitant]
     Dosage: UNK
  7. LUNESTA [Concomitant]
     Dosage: UNK
  8. SPIRONOLACTONE [Concomitant]
     Dosage: UNK

REACTIONS (6)
  - BURNING SENSATION [None]
  - DISORIENTATION [None]
  - GAIT DISTURBANCE [None]
  - INSOMNIA [None]
  - MIDDLE INSOMNIA [None]
  - PARAESTHESIA [None]
